FAERS Safety Report 4982596-4 (Version None)
Quarter: 2006Q1

REPORT INFORMATION
  Report Type: 
  Country: None (occurrence: None)
  Receive Date: 20060227
  Receipt Date: 20050603
  Transmission Date: 20060701
  Serious: Yes (Life-Threatening, Hospitalization)
  Sender: FDA-Public Use
  Company Number: WAES 0506USA00836

PATIENT
  Age: 68 Year
  Sex: Male
  Weight: 102.9665 kg

DRUGS (12)
  1. ZOCOR [Suspect]
     Indication: BLOOD CHOLESTEROL INCREASED
     Dosage: 40 MG/DAILY/PO; 80 MG/DAILY/PO
     Route: 048
     Dates: start: 20020301, end: 20050510
  2. ZOCOR [Suspect]
     Indication: BLOOD CHOLESTEROL INCREASED
     Dosage: 40 MG/DAILY/PO; 80 MG/DAILY/PO
     Route: 048
     Dates: start: 20050511, end: 20050602
  3. ELAVIL [Concomitant]
  4. GLUCOPHAGE [Concomitant]
  5. LANTUS [Concomitant]
  6. LOPRESSOR [Concomitant]
  7. NOVOLIN R [Concomitant]
  8. VIAGRA [Concomitant]
  9. ZESTRIL [Concomitant]
  10. ZYLOPRIM [Concomitant]
  11. ASPIRIN [Concomitant]
  12. HYDROCHLOROTHIAZIDE [Concomitant]

REACTIONS (3)
  - HEPATITIS [None]
  - RENAL FAILURE ACUTE [None]
  - RHABDOMYOLYSIS [None]
